FAERS Safety Report 8476292-9 (Version None)
Quarter: 2012Q2

REPORT INFORMATION
  Report Type: 
  Country: None (occurrence: None)
  Receive Date: 20120628
  Receipt Date: 20120625
  Transmission Date: 20120825
  Serious: No
  Sender: FDA-Public Use
  Company Number: US-BAYER-2012-063866

PATIENT

DRUGS (3)
  1. COCAINE [Concomitant]
  2. NYQUIL [Concomitant]
  3. ALEVE (CAPLET) [Suspect]
     Route: 045

REACTIONS (1)
  - NO ADVERSE EVENT [None]
